FAERS Safety Report 10239491 (Version 1)
Quarter: 2014Q2

REPORT INFORMATION
  Report Type: Spontaneous
  Country: IT (occurrence: None)
  Receive Date: 20140612
  Receipt Date: 20140612
  Transmission Date: 20141212
  Serious: Yes (Hospitalization)
  Sender: FDA-Public Use
  Company Number: DEP_01637_2013

PATIENT
  Age: 23 Year
  Sex: Male

DRUGS (1)
  1. PECFENT [Suspect]
     Indication: PRODUCT USED FOR UNKNOWN INDICATION
     Dosage: (100 UG QD, 100 UG/1 BOTTLE), (400 MCG)

REACTIONS (2)
  - Drug abuse [None]
  - Coma [None]
